FAERS Safety Report 17311546 (Version 1)
Quarter: 2020Q1

REPORT INFORMATION
  Report Type: Spontaneous
  Country: US (occurrence: US)
  Receive Date: 20200123
  Receipt Date: 20200123
  Transmission Date: 20200409
  Serious: Yes (Death, Hospitalization)
  Sender: FDA-Public Use
  Company Number: US-ROCHE-2341722

PATIENT
  Sex: Female

DRUGS (8)
  1. RITUXAN [Suspect]
     Active Substance: RITUXIMAB
     Indication: THROMBOCYTOPENIC PURPURA
     Route: 065
  2. LEMTRADA [Suspect]
     Active Substance: ALEMTUZUMAB
     Route: 065
     Dates: start: 20170522, end: 20170522
  3. IMMUNOGLOBULINS (IVIG) [Suspect]
     Active Substance: HUMAN IMMUNOGLOBULIN G
     Indication: THROMBOCYTOPENIC PURPURA
     Route: 042
  4. ROMIPLOSTIM [Suspect]
     Active Substance: ROMIPLOSTIM
     Indication: THROMBOCYTOPENIC PURPURA
     Route: 065
     Dates: start: 2018
  5. LEMTRADA [Suspect]
     Active Substance: ALEMTUZUMAB
     Indication: THROMBOCYTOPENIC PURPURA
     Route: 065
     Dates: start: 20170519, end: 20170519
  6. METHYLPREDNISOLONE. [Suspect]
     Active Substance: METHYLPREDNISOLONE
     Indication: THROMBOCYTOPENIC PURPURA
     Route: 065
  7. ROMIPLOSTIM [Suspect]
     Active Substance: ROMIPLOSTIM
     Route: 058
  8. PREDNISONE. [Suspect]
     Active Substance: PREDNISONE
     Indication: THROMBOCYTOPENIC PURPURA
     Route: 042

REACTIONS (1)
  - Infection [Fatal]
